FAERS Safety Report 12805998 (Version 1)
Quarter: 2016Q4

REPORT INFORMATION
  Report Type: Spontaneous
  Country: US (occurrence: US)
  Receive Date: 20161003
  Receipt Date: 20161003
  Transmission Date: 20170207
  Serious: Yes (Hospitalization)
  Sender: FDA-Public Use
  Company Number: None

PATIENT
  Age: 74 Year
  Sex: Male
  Weight: 114.8 kg

DRUGS (2)
  1. ZOLEDRONIC [Suspect]
     Active Substance: ZOLEDRONIC ACID
     Indication: PROPHYLAXIS
     Route: 042
     Dates: start: 20160912, end: 20160912
  2. ZOLEDRONIC [Suspect]
     Active Substance: ZOLEDRONIC ACID
     Indication: BONE LOSS
     Route: 042
     Dates: start: 20160912, end: 20160912

REACTIONS (6)
  - Diarrhoea [None]
  - Fatigue [None]
  - Malaise [None]
  - Vomiting [None]
  - Arthralgia [None]
  - Nausea [None]

NARRATIVE: CASE EVENT DATE: 20160917
